FAERS Safety Report 8541865 (Version 2)
Quarter: 2012Q4

REPORT INFORMATION
  Report Type: Spontaneous
  Country: GB (occurrence: None)
  Receive Date: 20120424
  Receipt Date: 20120810
  Transmission Date: 20130627
  Serious: Yes (Hospitalization, Other)
  Sender: FDA-Public Use
  Company Number: TUK2012A00083

PATIENT
  Age: 69 Year
  Sex: Female

DRUGS (2)
  1. PIOGLITAZONE HYDROCHLORIDE [Suspect]
     Indication: TYPE 2 DIABETES MELLITUS
  2. METFORMIN HYDROCHLORIDE [Suspect]
     Indication: TYPE 2 DIABETES MELLITUS

REACTIONS (15)
  - Ear pain [None]
  - Headache [None]
  - Otitis externa [None]
  - Proteinuria [None]
  - Red blood cell sedimentation rate increased [None]
  - VIIth nerve paralysis [None]
  - Deafness unilateral [None]
  - Auricular swelling [None]
  - Otorrhoea [None]
  - Purulence [None]
  - Diabetes mellitus inadequate control [None]
  - Soft tissue mass [None]
  - Bone disorder [None]
  - Drug ineffective [None]
  - Glycosylated haemoglobin increased [None]
